FAERS Safety Report 6644421-5 (Version None)
Quarter: 2010Q1

REPORT INFORMATION
  Report Type: 
  Country: None (occurrence: None)
  Receive Date: 20100322
  Receipt Date: 20100311
  Transmission Date: 20100710
  Serious: Yes (Hospitalization)
  Sender: FDA-Public Use
  Company Number: NL-ROCHE-690529

PATIENT
  Sex: Male

DRUGS (8)
  1. CAPECITABINE [Suspect]
     Indication: COLORECTAL CANCER
     Route: 065
     Dates: start: 20090209, end: 20090601
  2. CAPECITABINE [Suspect]
     Route: 065
     Dates: start: 20090824, end: 20100119
  3. BEVACIZUMAB [Suspect]
     Indication: COLORECTAL CANCER
     Route: 065
     Dates: start: 20090209, end: 20090601
  4. BEVACIZUMAB [Suspect]
     Route: 065
     Dates: start: 20090824, end: 20100119
  5. OXALIPLATIN [Suspect]
     Indication: COLORECTAL CANCER
     Route: 065
     Dates: start: 20090209, end: 20090601
  6. OXALIPLATIN [Suspect]
     Route: 065
     Dates: start: 20090824, end: 20090824
  7. OMEPRAZOLE [Concomitant]
  8. DICLOFENAC [Concomitant]

REACTIONS (2)
  - INFECTION [None]
  - METASTASES TO LUNG [None]
